FAERS Safety Report 5924990-0 (Version None)
Quarter: 2008Q3

REPORT INFORMATION
  Report Type: 
  Country: None (occurrence: None)
  Receive Date: 20080909
  Receipt Date: 20080428
  Transmission Date: 20090109
  Serious: Yes (Hospitalization, Other)
  Sender: FDA-Public Use
  Company Number: 163-20785-08040606

PATIENT
  Age: 57 Year
  Sex: Male
  Weight: 85.5 kg

DRUGS (22)
  1. THALOMID [Suspect]
     Indication: MULTIPLE MYELOMA
     Dosage: 100 MG, DAILY, ORAL ; 200 MG, DAILY, ORAL
     Route: 048
     Dates: start: 20041127
  2. DEXAMETHASONE TAB [Suspect]
     Indication: MULTIPLE MYELOMA
     Dosage: 20 MG ; 40 MG
     Dates: start: 20041127
  3. VELCADE [Suspect]
     Indication: MULTIPLE MYELOMA
     Dosage: 1MG/M2
     Dates: start: 20041124, end: 20050115
  4. CISPLATIN [Suspect]
     Indication: MULTIPLE MYELOMA
     Dosage: 10MG/M2
     Dates: start: 20041127, end: 20050110
  5. ADRIAMYCIN PFS [Suspect]
     Indication: MULTIPLE MYELOMA
     Dosage: 10MG/M2
     Dates: start: 20041127, end: 20050110
  6. CYCLOPHOSPHAMIDE [Suspect]
     Indication: MULTIPLE MYELOMA
     Dosage: 400MG/M2
     Dates: start: 20041127, end: 20050110
  7. ETOPOSIDE [Suspect]
     Indication: MULTIPLE MYELOMA
     Dosage: 200MG/M2
     Dates: start: 20050216, end: 20050505
  8. MELPHALAN (MELPHALAN) [Suspect]
     Indication: MULTIPLE MYELOMA
     Dosage: 200MG/M2
     Dates: start: 20050216, end: 20050505
  9. AREDIA [Concomitant]
  10. ACYCLOVIR [Concomitant]
  11. ZOLOFT [Concomitant]
  12. TAMSULOSIN HCL [Concomitant]
  13. FLEXERIL [Concomitant]
  14. MORPHINE ER (MORPHINE) [Concomitant]
  15. MEGACE [Concomitant]
  16. ENOXAPARIN SODIUM [Concomitant]
  17. EPOGEN [Concomitant]
  18. IMODIUM [Concomitant]
  19. MVI (MVI) (TABLETS) [Concomitant]
  20. FA (PREGAMAL) [Concomitant]
  21. HEPARIN [Concomitant]
  22. OXYGEN (OXYGEN) [Concomitant]

REACTIONS (3)
  - BRONCHOPNEUMONIA [None]
  - HYPOXIA [None]
  - NEUTROPENIA [None]
